FAERS Safety Report 5519728-5 (Version None)
Quarter: 2007Q4

REPORT INFORMATION
  Report Type: 
  Country: None (occurrence: None)
  Receive Date: 20071116
  Receipt Date: 20070725
  Transmission Date: 20080405
  Serious: No
  Sender: FDA-Public Use
  Company Number: A0666322A

PATIENT
  Age: 56 Year
  Sex: Female

DRUGS (5)
  1. COREG CR [Suspect]
     Indication: HYPERTENSION
     Dosage: 20MG PER DAY
     Dates: start: 20070625
  2. WARFARIN SODIUM [Concomitant]
  3. FOLIC ACID [Concomitant]
  4. IRON [Concomitant]
  5. GLUCOSAMINE [Concomitant]

REACTIONS (2)
  - ARTHRALGIA [None]
  - JOINT SWELLING [None]
